FAERS Safety Report 23151882 (Version 1)
Quarter: 2023Q4

REPORT INFORMATION
  Report Type: Spontaneous
  Country: US (occurrence: US)
  Receive Date: 20231107
  Receipt Date: 20231107
  Transmission Date: 20240109
  Serious: No
  Sender: FDA-Public Use
  Company Number: US-APOTEX-2023AP014505

PATIENT
  Age: 64 Year
  Sex: Male

DRUGS (12)
  1. CARBAMAZEPINE [Suspect]
     Active Substance: CARBAMAZEPINE
     Indication: Trigeminal neuralgia
     Dosage: UNK
     Route: 065
  2. GABAPENTIN [Suspect]
     Active Substance: GABAPENTIN
     Indication: Trigeminal neuralgia
     Dosage: 300 MG IN THE MORNING AND 600 MG IN THE EVENING
     Route: 065
  3. GABAPENTIN [Suspect]
     Active Substance: GABAPENTIN
     Indication: Breakthrough pain
  4. CELECOXIB [Suspect]
     Active Substance: CELECOXIB
     Indication: Trigeminal neuralgia
     Dosage: 200 MILLIGRAM, QD
     Route: 065
  5. CELECOXIB [Suspect]
     Active Substance: CELECOXIB
     Indication: Breakthrough pain
  6. TRAMADOL [Suspect]
     Active Substance: TRAMADOL\TRAMADOL HYDROCHLORIDE
     Indication: Trigeminal neuralgia
     Dosage: 50 MILLIGRAM, Q.6H AS NEEDED
     Route: 065
  7. OXYCODONE [Suspect]
     Active Substance: OXYCODONE
     Indication: Trigeminal neuralgia
     Dosage: 5 MILLIGRAM, Q.4H. AS NEEDED
     Route: 065
  8. HYDROMORPHONE [Suspect]
     Active Substance: HYDROMORPHONE
     Indication: Trigeminal neuralgia
     Dosage: 0.5 MILLIGRAM, Q.3H. AS NEEDED
     Route: 042
  9. HYDROMORPHONE [Suspect]
     Active Substance: HYDROMORPHONE
     Indication: Breakthrough pain
  10. MORPHINE [Concomitant]
     Active Substance: MORPHINE
     Indication: Trigeminal neuralgia
     Dosage: 60 MILLIGRAM, Q.12H
     Route: 065
  11. METHADONE [Concomitant]
     Active Substance: METHADONE HYDROCHLORIDE
     Indication: Trigeminal neuralgia
     Dosage: 5 MILLIGRAM, Q.12H
     Route: 065
  12. METHADONE [Concomitant]
     Active Substance: METHADONE HYDROCHLORIDE
     Dosage: 5 MILLIGRAM, TID
     Route: 065

REACTIONS (3)
  - Drug intolerance [Unknown]
  - Adverse drug reaction [Unknown]
  - Drug ineffective [Unknown]
